FAERS Safety Report 24629370 (Version 1)
Quarter: 2024Q4

REPORT INFORMATION
  Report Type: Spontaneous
  Country: JP (occurrence: JP)
  Receive Date: 20241118
  Receipt Date: 20241118
  Transmission Date: 20250115
  Serious: Yes (Hospitalization, Other)
  Sender: JUBILANT
  Company Number: None

PATIENT
  Age: 38 Year
  Sex: Female

DRUGS (1)
  1. SPIRONOLACTONE [Suspect]
     Active Substance: SPIRONOLACTONE
     Indication: Prophylaxis
     Dosage: UNK,  UNK
     Route: 048

REACTIONS (4)
  - Portal vein occlusion [Recovering/Resolving]
  - Pulmonary arteriovenous fistula [Recovering/Resolving]
  - Portal vein thrombosis [Recovering/Resolving]
  - Pulmonary embolism [Recovering/Resolving]
